FAERS Safety Report 13011791 (Version 3)
Quarter: 2017Q1

REPORT INFORMATION
  Report Type: Report from Study
  Country: US (occurrence: US)
  Receive Date: 20161209
  Receipt Date: 20170117
  Transmission Date: 20170428
  Serious: Yes (Death)
  Sender: FDA-Public Use
  Company Number: US-ROCHE-1865874

PATIENT
  Age: 91 Year
  Sex: Female

DRUGS (1)
  1. LUCENTIS [Suspect]
     Active Substance: RANIBIZUMAB
     Indication: RETINAL VEIN OCCLUSION
     Dosage: 0.05 ML
     Route: 050
     Dates: start: 20160718

REACTIONS (1)
  - Death [Fatal]

NARRATIVE: CASE EVENT DATE: 20161110
